FAERS Safety Report 13936364 (Version 1)
Quarter: 2017Q3

REPORT INFORMATION
  Report Type: Spontaneous
  Country: FR (occurrence: FR)
  Receive Date: 20170905
  Receipt Date: 20170905
  Transmission Date: 20171127
  Serious: Yes (Life-Threatening, Other)
  Sender: FDA-Public Use
  Company Number: FR-GLAXOSMITHKLINE-FR2017GSK136263

PATIENT
  Age: 22 Year
  Sex: Male

DRUGS (5)
  1. LAMICTAL [Suspect]
     Active Substance: LAMOTRIGINE
     Indication: EPILEPSY
     Dosage: 25 MG, QD
     Route: 048
     Dates: start: 20170719, end: 20170801
  2. AMOXICILLINE [Concomitant]
     Active Substance: AMOXICILLIN
     Dosage: UNK
     Dates: start: 201708
  3. PARACETAMOL [Concomitant]
     Active Substance: ACETAMINOPHEN
     Dosage: UNK
     Dates: start: 201708
  4. SOLUPRED [Concomitant]
     Active Substance: PREDNISOLONE
     Dosage: UNK
     Dates: start: 201708
  5. LAMICTAL [Suspect]
     Active Substance: LAMOTRIGINE
     Dosage: 25 MG, BID
     Route: 048
     Dates: start: 20170801, end: 20170810

REACTIONS (3)
  - Incorrect dose administered [Unknown]
  - Stevens-Johnson syndrome [Recovered/Resolved]
  - Inappropriate schedule of drug administration [Unknown]

NARRATIVE: CASE EVENT DATE: 20170808
